FAERS Safety Report 13019053 (Version 1)
Quarter: 2016Q4

REPORT INFORMATION
  Report Type: Spontaneous
  Country: US (occurrence: US)
  Receive Date: 20161212
  Receipt Date: 20161212
  Transmission Date: 20170207
  Serious: No
  Sender: FDA-Public Use
  Company Number: US-ROCHE-1649301

PATIENT
  Sex: Female

DRUGS (3)
  1. VALIUM [Suspect]
     Active Substance: DIAZEPAM
     Indication: SLEEP DISORDER
     Route: 065
  2. VALIUM [Suspect]
     Active Substance: DIAZEPAM
     Route: 065
  3. VALIUM [Suspect]
     Active Substance: DIAZEPAM
     Route: 065

REACTIONS (11)
  - Throat tightness [Unknown]
  - Sensory disturbance [Unknown]
  - Medication error [Unknown]
  - Muscle tightness [Unknown]
  - Dependence [Unknown]
  - Anger [Unknown]
  - Eye disorder [Unknown]
  - Palpitations [Unknown]
  - Paraesthesia [Unknown]
  - Thyroid disorder [Unknown]
  - Stress [Unknown]

NARRATIVE: CASE EVENT DATE: 201506
